FAERS Safety Report 19596550 (Version 1)
Quarter: 2021Q3

REPORT INFORMATION
  Report Type: Spontaneous
  Country: IT (occurrence: IT)
  Receive Date: 20210723
  Receipt Date: 20210723
  Transmission Date: 20211014
  Serious: Yes (Other)
  Sender: FDA-Public Use
  Company Number: IT-HIKMA PHARMACEUTICALS USA INC.-IT-H14001-21-03262

PATIENT
  Age: 61 Year
  Sex: Male

DRUGS (6)
  1. MYLOTARG [Suspect]
     Active Substance: GEMTUZUMAB OZOGAMICIN
     Indication: ACUTE MYELOID LEUKAEMIA
     Dosage: DAY 1,4 AND 7
     Route: 065
     Dates: start: 20200821
  2. DAUNORUBICIN HYDROCHLORIDE. [Suspect]
     Active Substance: DAUNORUBICIN HYDROCHLORIDE
     Indication: ACUTE MYELOID LEUKAEMIA
     Dosage: DAY 1 TO 3
     Route: 065
     Dates: start: 20200821
  3. MYLOTARG [Suspect]
     Active Substance: GEMTUZUMAB OZOGAMICIN
     Dosage: DAY 1
     Route: 065
     Dates: start: 20201013
  4. DAUNORUBICIN HYDROCHLORIDE. [Suspect]
     Active Substance: DAUNORUBICIN HYDROCHLORIDE
     Dosage: DAY 1
     Route: 065
     Dates: start: 20201013
  5. CYTARABINE. [Suspect]
     Active Substance: CYTARABINE
     Dosage: 1G/M2 (DAYS 1 TO 4)
     Route: 065
     Dates: start: 20201013
  6. CYTARABINE. [Suspect]
     Active Substance: CYTARABINE
     Indication: ACUTE MYELOID LEUKAEMIA
     Dosage: DAY 1 TO 7
     Route: 065
     Dates: start: 20200821

REACTIONS (5)
  - Thrombocytopenia [Unknown]
  - Bone marrow failure [Unknown]
  - Hyperpyrexia [Recovered/Resolved]
  - Necrotising colitis [Recovered/Resolved]
  - Neutropenia [Unknown]
